FAERS Safety Report 8278660-7 (Version None)
Quarter: 2012Q2

REPORT INFORMATION
  Report Type: 
  Country: None (occurrence: None)
  Receive Date: 20120412
  Receipt Date: 20120403
  Transmission Date: 20120825
  Serious: Yes (Other)
  Sender: FDA-Public Use
  Company Number: US-FRI-1000029286

PATIENT
  Sex: Female

DRUGS (4)
  1. KLONOPIN [Concomitant]
  2. VIIBRYD [Suspect]
     Dosage: 20 MG
     Dates: start: 20120312, end: 20120318
  3. VIIBRYD [Suspect]
     Indication: DEPRESSION
     Dosage: 10 MG
     Dates: start: 20120305, end: 20120311
  4. VIIBRYD [Suspect]
     Dosage: 40 MG
     Dates: start: 20120319, end: 20120319

REACTIONS (1)
  - SUICIDAL IDEATION [None]
